FAERS Safety Report 17896229 (Version 1)
Quarter: 2020Q2

REPORT INFORMATION
  Report Type: Spontaneous
  Country: IT (occurrence: IT)
  Receive Date: 20200615
  Receipt Date: 20200615
  Transmission Date: 20200714
  Serious: Yes (Other)
  Sender: FDA-Public Use
  Company Number: IT-GUERBET-IT-20200058

PATIENT
  Age: 77 Year
  Sex: Male

DRUGS (1)
  1. OPTIRAY 320 [Suspect]
     Active Substance: IOVERSOL
     Indication: COMPUTERISED TOMOGRAM ABDOMEN
     Route: 042
     Dates: start: 20200519, end: 20200519

REACTIONS (4)
  - Laryngeal oedema [Unknown]
  - Flushing [Unknown]
  - Eyelid oedema [Unknown]
  - Angioedema [Unknown]

NARRATIVE: CASE EVENT DATE: 20200519
